FAERS Safety Report 8896136 (Version 1)
Quarter: 2012Q4

REPORT INFORMATION
  Report Type: 
  Country: US (occurrence: US)
  Receive Date: 20121108
  Receipt Date: 20121108
  Transmission Date: 20130627
  Serious: No
  Sender: FDA-Public Use
  Company Number: US-PFIZER INC-2012097430

PATIENT
  Age: 47 Year
  Sex: Female
  Weight: 116 kg

DRUGS (3)
  1. LYRICA [Suspect]
     Indication: FIBROMYALGIA
     Dosage: 200 mg, 3x/day
     Route: 048
     Dates: start: 200611
  2. LYRICA [Suspect]
     Dosage: 200 mg, daily
     Route: 048
     Dates: start: 20121103, end: 20121105
  3. TRAMADOL [Concomitant]
     Indication: PAIN
     Dosage: UNK, 6x/day
     Dates: start: 201011

REACTIONS (2)
  - Dysarthria [Unknown]
  - Intentional drug misuse [Unknown]
